FAERS Safety Report 7960890-2 (Version None)
Quarter: 2011Q4

REPORT INFORMATION
  Report Type: 
  Country: None (occurrence: None)
  Receive Date: 20111201
  Receipt Date: 20111119
  Transmission Date: 20120403
  Serious: Yes (Hospitalization)
  Sender: FDA-Public Use
  Company Number: AUR-APL-2011-05900

PATIENT
  Age: 74 Year
  Sex: Female

DRUGS (1)
  1. MINOCYCLINE HCL [Suspect]
     Indication: RHEUMATOID ARTHRITIS

REACTIONS (3)
  - UPPER GASTROINTESTINAL HAEMORRHAGE [None]
  - SCAR [None]
  - SKIN DISCOLOURATION [None]
